FAERS Safety Report 12157204 (Version 2)
Quarter: 2016Q2

REPORT INFORMATION
  Report Type: Spontaneous
  Country: JP (occurrence: JP)
  Receive Date: 20160308
  Receipt Date: 20160425
  Transmission Date: 20160815
  Serious: Yes (Other)
  Sender: FDA-Public Use
  Company Number: JP-ROCHE-1721989

PATIENT
  Age: 72 Year
  Sex: Male

DRUGS (15)
  1. VERTEPORFIN [Suspect]
     Active Substance: VERTEPORFIN
     Route: 042
     Dates: start: 20140306
  2. RANIBIZUMAB [Suspect]
     Active Substance: RANIBIZUMAB
     Dosage: LEFT EYE?PREFILLED SYRINGE
     Route: 050
     Dates: start: 20140418
  3. VERTEPORFIN [Suspect]
     Active Substance: VERTEPORFIN
     Indication: AGE-RELATED MACULAR DEGENERATION
     Route: 042
     Dates: start: 20121213
  4. RANIBIZUMAB [Suspect]
     Active Substance: RANIBIZUMAB
     Dosage: LEFT EYE?PREFILLED SYRINGE
     Route: 050
     Dates: start: 20130108
  5. RANIBIZUMAB [Suspect]
     Active Substance: RANIBIZUMAB
     Dosage: LEFT EYE?PREFILLED SYRINGE
     Route: 050
     Dates: start: 20140516
  6. RANIBIZUMAB [Suspect]
     Active Substance: RANIBIZUMAB
     Dosage: LEFT EYE?PREFILLED SYRINGE
     Route: 050
     Dates: start: 20140926
  7. VERTEPORFIN [Suspect]
     Active Substance: VERTEPORFIN
     Route: 042
     Dates: start: 20140725
  8. RANIBIZUMAB [Suspect]
     Active Substance: RANIBIZUMAB
     Dosage: LEFT EYE?PREFILLED SYRINGE
     Route: 050
     Dates: start: 20140303
  9. TRIAMCINOLONE [Concomitant]
     Active Substance: TRIAMCINOLONE
     Route: 065
     Dates: start: 20140303
  10. RANIBIZUMAB [Suspect]
     Active Substance: RANIBIZUMAB
     Indication: AGE-RELATED MACULAR DEGENERATION
     Dosage: LEFT EYE?PREFILLED SYRINGE
     Route: 050
     Dates: start: 20121210
  11. RANIBIZUMAB [Suspect]
     Active Substance: RANIBIZUMAB
     Dosage: LEFT EYE?PREFILLED SYRINGE
     Route: 050
     Dates: start: 20140722
  12. TRIAMCINOLONE [Concomitant]
     Active Substance: TRIAMCINOLONE
     Route: 065
     Dates: start: 20121210
  13. TRIAMCINOLONE [Concomitant]
     Active Substance: TRIAMCINOLONE
     Route: 065
     Dates: start: 20140722
  14. RANIBIZUMAB [Suspect]
     Active Substance: RANIBIZUMAB
     Dosage: LEFT EYE?PREFILLED SYRINGE
     Route: 050
     Dates: start: 20130218
  15. RANIBIZUMAB [Suspect]
     Active Substance: RANIBIZUMAB
     Dosage: LEFT EYE?PREFILLED SYRINGE
     Route: 050
     Dates: start: 20140829

REACTIONS (2)
  - Visual acuity reduced [Unknown]
  - Eye haemorrhage [Recovering/Resolving]

NARRATIVE: CASE EVENT DATE: 20140715
